FAERS Safety Report 5934081-0 (Version None)
Quarter: 2008Q4

REPORT INFORMATION
  Report Type: 
  Country: None (occurrence: None)
  Receive Date: 20081029
  Receipt Date: 20081028
  Transmission Date: 20090506
  Serious: Yes (Other)
  Sender: FDA-Public Use
  Company Number: CA-MERCK-0810CAN00131

PATIENT
  Sex: Female

DRUGS (4)
  1. FOSAMAX [Suspect]
     Route: 048
     Dates: start: 20080101
  2. METHYLPHENIDATE HYDROCHLORIDE [Concomitant]
     Route: 065
  3. ESCITALOPRAM OXALATE [Concomitant]
     Route: 065
  4. ZOPICLONE [Concomitant]
     Route: 065

REACTIONS (1)
  - HYPOACUSIS [None]
